FAERS Safety Report 6120968-5 (Version None)
Quarter: 2009Q1

REPORT INFORMATION
  Report Type: 
  Country: None (occurrence: None)
  Receive Date: 20090312
  Receipt Date: 20090312
  Transmission Date: 20090719
  Serious: Yes (Other)
  Sender: FDA-Public Use
  Company Number: None

PATIENT
  Age: 72 Year
  Sex: Male
  Weight: 90.7194 kg

DRUGS (3)
  1. ETOPOSIDE [Suspect]
     Indication: BONE NEOPLASM MALIGNANT
     Dosage: 200 MG EVERY 3 WEEKS IV
     Route: 042
     Dates: start: 20080108, end: 20090309
  2. ETOPOSIDE [Suspect]
     Indication: HEPATIC NEOPLASM MALIGNANT
     Dosage: 200 MG EVERY 3 WEEKS IV
     Route: 042
     Dates: start: 20080108, end: 20090309
  3. CARBOPLATIN 300 BAXTER [Suspect]
     Dosage: 270 MG EVERY 3 WEEKS IV
     Route: 042

REACTIONS (4)
  - DRUG INEFFECTIVE [None]
  - FLUID INTAKE REDUCED [None]
  - NAUSEA [None]
  - VOMITING [None]
